FAERS Safety Report 25127392 (Version 1)
Quarter: 2025Q1

REPORT INFORMATION
  Report Type: Spontaneous
  Country: US (occurrence: US)
  Receive Date: 20250327
  Receipt Date: 20250327
  Transmission Date: 20250409
  Serious: No
  Sender: RANBAXY
  Company Number: US-SUN PHARMACEUTICAL INDUSTRIES LTD-2025R1-495013

PATIENT
  Sex: Female

DRUGS (5)
  1. RANOLAZINE HYDROCHLORIDE [Suspect]
     Active Substance: RANOLAZINE HYDROCHLORIDE
     Indication: Microvascular coronary artery disease
     Dosage: 500 MILLIGRAM, BID
     Route: 065
  2. RANOLAZINE HYDROCHLORIDE [Suspect]
     Active Substance: RANOLAZINE HYDROCHLORIDE
     Indication: Arteriosclerosis
  3. RANOLAZINE HYDROCHLORIDE [Suspect]
     Active Substance: RANOLAZINE HYDROCHLORIDE
     Indication: Angina pectoris
  4. AMLODIPINE [Concomitant]
     Active Substance: AMLODIPINE BESYLATE
     Indication: Product used for unknown indication
     Route: 065
  5. Losartan 50-100mg [Concomitant]
     Indication: Product used for unknown indication
     Route: 065

REACTIONS (2)
  - Wrong technique in product usage process [Unknown]
  - Product use complaint [Unknown]
